FAERS Safety Report 16475343 (Version 1)
Quarter: 2019Q2

REPORT INFORMATION
  Report Type: Spontaneous
  Country: US (occurrence: US)
  Receive Date: 20190625
  Receipt Date: 20190625
  Transmission Date: 20190711
  Serious: No
  Sender: FDA-Public Use
  Company Number: US-SA-2019SA171344

PATIENT
  Age: 70 Year
  Sex: Female

DRUGS (9)
  1. LEVOTHYROXIN [Concomitant]
     Active Substance: LEVOTHYROXINE
  2. ATENOLOL. [Concomitant]
     Active Substance: ATENOLOL
  3. KEVZARA [Suspect]
     Active Substance: SARILUMAB
     Dosage: 200 MG, QOW
     Route: 058
     Dates: start: 201906
  4. HYDROXYCHLOROQUINE [Concomitant]
     Active Substance: HYDROXYCHLOROQUINE
  5. HYDROCODONE [Concomitant]
     Active Substance: HYDROCODONE
  6. LOSARTAN POTASSIUM. [Concomitant]
     Active Substance: LOSARTAN POTASSIUM
  7. METHOTREXATE. [Concomitant]
     Active Substance: METHOTREXATE
  8. PREDNISONE. [Concomitant]
     Active Substance: PREDNISONE
  9. LEFLUNOMIDE. [Concomitant]
     Active Substance: LEFLUNOMIDE

REACTIONS (1)
  - Rash generalised [Not Recovered/Not Resolved]
